FAERS Safety Report 25282253 (Version 1)
Quarter: 2025Q2

REPORT INFORMATION
  Report Type: Other
  Country: CN (occurrence: CN)
  Receive Date: 20250508
  Receipt Date: 20250508
  Transmission Date: 20250717
  Serious: Yes (Other)
  Sender: CAPLIN STERILES LIMITED
  Company Number: CN-Caplin Steriles Limited-2176395

PATIENT
  Age: 40 Year
  Sex: Male

DRUGS (6)
  1. ETOMIDATE [Suspect]
     Active Substance: ETOMIDATE
     Indication: Product used for unknown indication
     Dates: start: 20230605, end: 20230905
  2. DIAZEPAM [Concomitant]
     Active Substance: DIAZEPAM
  3. VALPROATE SODIUM [Concomitant]
     Active Substance: VALPROATE SODIUM
  4. Intravenous fluids [Concomitant]
  5. PRIMIDONE [Concomitant]
     Active Substance: PRIMIDONE
  6. OLANZAPINE [Concomitant]
     Active Substance: OLANZAPINE

REACTIONS (6)
  - Drug abuse [Unknown]
  - Road traffic accident [Unknown]
  - Fall [Unknown]
  - Dysstasia [Unknown]
  - Confusional state [Unknown]
  - Dizziness [Unknown]
